FAERS Safety Report 5076144-0 (Version None)
Quarter: 2006Q3

REPORT INFORMATION
  Report Type: 
  Country: None (occurrence: None)
  Receive Date: 20060807
  Receipt Date: 20060725
  Transmission Date: 20061208
  Serious: Yes (Life-Threatening, Hospitalization, Other)
  Sender: FDA-Public Use
  Company Number: 2004080828

PATIENT
  Age: 18 Year
  Sex: Female

DRUGS (9)
  1. NEURONTIN [Suspect]
     Indication: BIPOLAR DISORDER
     Dosage: 200 MG (100 MG, 2 IN 1 D), ORAL
     Route: 048
     Dates: start: 20010610
  2. NEURONTIN [Suspect]
     Indication: DEPRESSION
     Dosage: 200 MG (100 MG, 2 IN 1 D), ORAL
     Route: 048
     Dates: start: 20010610
  3. NEURONTIN [Suspect]
     Indication: MOOD SWINGS
     Dosage: 200 MG (100 MG, 2 IN 1 D), ORAL
     Route: 048
     Dates: start: 20010610
  4. NEURONTIN [Suspect]
     Indication: PAIN
     Dosage: 200 MG (100 MG, 2 IN 1 D), ORAL
     Route: 048
     Dates: start: 20010610
  5. DESYREL [Suspect]
     Indication: INSOMNIA
     Dosage: ORAL
     Route: 048
     Dates: start: 20020723
  6. KLONOPIN [Suspect]
     Indication: INSOMNIA
     Dosage: ORAL
     Route: 048
     Dates: start: 20020514
  7. CELEXA [Suspect]
     Indication: BIPOLAR DISORDER
     Dates: start: 20001212
  8. CELEXA [Suspect]
     Indication: DEPRESSION
     Dates: start: 20001212
  9. LORAZEPAM [Suspect]
     Indication: INTENTIONAL OVERDOSE
     Dates: start: 20020715

REACTIONS (8)
  - DISEASE RECURRENCE [None]
  - INSOMNIA [None]
  - MAJOR DEPRESSION [None]
  - OVERDOSE [None]
  - SELF MUTILATION [None]
  - SKIN LACERATION [None]
  - SUICIDAL BEHAVIOUR [None]
  - SUICIDE ATTEMPT [None]
